FAERS Safety Report 7457384-X (Version None)
Quarter: 2011Q2

REPORT INFORMATION
  Report Type: 
  Country: None (occurrence: None)
  Receive Date: 20110502
  Receipt Date: 20110502
  Transmission Date: 20111010
  Serious: Yes (Other)
  Sender: FDA-Public Use
  Company Number: None

PATIENT
  Age: 13 Year
  Sex: Male
  Weight: 62 kg

DRUGS (2)
  1. INTUNIV [Suspect]
     Dosage: THEN MOVE TO 2 MG
  2. INTUNIV [Suspect]
     Dosage: ONE DAILY PO
     Route: 048
     Dates: start: 20110413, end: 20110427

REACTIONS (1)
  - TINNITUS [None]
